FAERS Safety Report 7945750-5 (Version None)
Quarter: 2011Q4

REPORT INFORMATION
  Report Type: 
  Country: None (occurrence: None)
  Receive Date: 20111129
  Receipt Date: 20111129
  Transmission Date: 20120403
  Serious: Yes (Hospitalization)
  Sender: FDA-Public Use
  Company Number: IT-BAYER-2011-114169

PATIENT
  Age: 74 Year
  Sex: Male

DRUGS (10)
  1. NITRODERM [Concomitant]
     Indication: MYOCARDIAL ISCHAEMIA
     Dosage: 10 MG, UNK
  2. COUMADIN [Suspect]
     Indication: ATRIAL FIBRILLATION
     Dosage: 5 MG, PRN
     Route: 048
     Dates: start: 20080101, end: 20111104
  3. ESKIM [Concomitant]
     Indication: HYPERTRIGLYCERIDAEMIA
     Dosage: 1000 MG, UNK
     Route: 048
  4. ATORVASTATIN CALCIUM [Concomitant]
     Indication: HYPERCHOLESTEROLAEMIA
     Dosage: 20 MG, UNK
     Route: 048
  5. LASIX [Suspect]
     Indication: HYPERTENSION
     Dosage: 10 MG, UNK
     Route: 048
     Dates: start: 20080101, end: 20111104
  6. METFORMIN HCL [Concomitant]
     Indication: TYPE 2 DIABETES MELLITUS
     Route: 048
  7. ACETYLSALICYLIC ACID SRT [Suspect]
     Indication: ATRIAL FIBRILLATION
     Dosage: DAILY DOSE 100 MG
     Route: 048
     Dates: start: 20080101, end: 20111104
  8. OMEPRAZOLE [Concomitant]
     Indication: PROPHYLAXIS AGAINST GASTROINTESTINAL ULCER
     Route: 048
  9. TAMSULOSIN HYDROCHLORIDE [Concomitant]
     Indication: BENIGN PROSTATIC HYPERPLASIA
     Dosage: 0.4 MG, UNK
     Route: 048
  10. MICARDIS [Suspect]
     Indication: HYPERTENSION
     Dosage: 80 MG, QD
     Route: 048
     Dates: start: 20080101, end: 20111104

REACTIONS (1)
  - ANAEMIA [None]
